FAERS Safety Report 23986164 (Version 1)
Quarter: 2024Q2

REPORT INFORMATION
  Report Type: Spontaneous
  Country: CL (occurrence: CL)
  Receive Date: 20240618
  Receipt Date: 20240618
  Transmission Date: 20240715
  Serious: No
  Sender: FDA-Public Use
  Company Number: CL-PFIZER INC-PV202400074709

PATIENT
  Age: 14 Year
  Sex: Female

DRUGS (1)
  1. GENOTROPIN [Suspect]
     Active Substance: SOMATROPIN
     Dosage: UNK
     Dates: start: 202405

REACTIONS (3)
  - Product prescribing error [Unknown]
  - Wrong technique in device usage process [Unknown]
  - Device leakage [Unknown]
